FAERS Safety Report 8791976 (Version 1)
Quarter: 2012Q4

REPORT INFORMATION
  Report Type: 
  Country: GB (occurrence: GB)
  Receive Date: 20120918
  Receipt Date: 20120918
  Transmission Date: 20130627
  Serious: Yes (Life-Threatening, Hospitalization, Disabling, Other)
  Sender: FDA-Public Use
  Company Number: GB-ABBOTT-11P-167-0707069-00

PATIENT
  Age: 16 Year
  Sex: Male
  Weight: 39.8 kg

DRUGS (6)
  1. HUMIRA [Suspect]
     Dosage: First dose
     Dates: start: 20101109
  2. HUMIRA [Suspect]
  3. AZATHIOPRINE [Suspect]
     Indication: CROHN^S DISEASE
     Dosage: 1 Days
     Dates: start: 200810
  4. MESALAZINE [Suspect]
     Indication: CROHN^S DISEASE
     Dates: start: 200901
  5. REMICADE [Suspect]
     Indication: PRODUCT USED FOR UNKNOWN INDICATION
     Dates: start: 200906, end: 201010
  6. PARACETAMOL [Concomitant]
     Indication: PRODUCT USED FOR UNKNOWN INDICATION

REACTIONS (2)
  - Testicular cancer metastatic [Unknown]
  - Testicular germ cell cancer [Unknown]
